FAERS Safety Report 5212417-6 (Version None)
Quarter: 2007Q1

REPORT INFORMATION
  Report Type: 
  Country: None (occurrence: None)
  Receive Date: 20070118
  Receipt Date: 20070108
  Transmission Date: 20070707
  Serious: Yes (Other)
  Sender: FDA-Public Use
  Company Number: US-PFIZER INC-2007003487

PATIENT
  Sex: Female
  Weight: 81.6 kg

DRUGS (7)
  1. LYRICA [Suspect]
     Indication: MIGRAINE
  2. LEXAPRO [Concomitant]
  3. ZOMIG [Concomitant]
  4. NEXIUM [Concomitant]
  5. CYCLOBENZAPRINE HCL [Concomitant]
  6. CLARITIN [Concomitant]
  7. SUDAFED 12 HOUR [Concomitant]

REACTIONS (4)
  - ACNE [None]
  - ALOPECIA [None]
  - DRUG INEFFECTIVE [None]
  - SEDATION [None]
